FAERS Safety Report 11518316 (Version 2)
Quarter: 2016Q2

REPORT INFORMATION
  Report Type: Spontaneous
  Country: US (occurrence: US)
  Receive Date: 20150917
  Receipt Date: 20160607
  Transmission Date: 20160815
  Serious: Yes (Hospitalization, Other)
  Sender: FDA-Public Use
  Company Number: US-TEVA-593749USA

PATIENT
  Age: 61 Year
  Sex: Female
  Weight: 118.95 kg

DRUGS (13)
  1. ZALSARTAN HCTZ [Suspect]
     Active Substance: UNSPECIFIED INGREDIENT
     Dosage: 160MG/12.5MG
     Route: 048
  2. NORCO [Concomitant]
     Active Substance: ACETAMINOPHEN\HYDROCODONE BITARTRATE
     Indication: POOR QUALITY SLEEP
  3. DIOVAN [Suspect]
     Active Substance: VALSARTAN
     Indication: NERVE INJURY
     Route: 065
     Dates: end: 201507
  4. MOBIC [Concomitant]
     Active Substance: MELOXICAM
     Indication: OSTEOARTHRITIS
  5. ALLOPURINOL. [Concomitant]
     Active Substance: ALLOPURINOL
     Indication: GOUT
  6. ATORVASTATIN [Concomitant]
     Active Substance: ATORVASTATIN
     Indication: BLOOD CHOLESTEROL INCREASED
  7. NORCO [Concomitant]
     Active Substance: ACETAMINOPHEN\HYDROCODONE BITARTRATE
     Indication: PAIN
  8. TIZANIDINE HYDROCHLORIDE. [Concomitant]
     Active Substance: TIZANIDINE HYDROCHLORIDE
     Indication: MUSCLE SPASMS
  9. PRILOSEC [Concomitant]
     Active Substance: OMEPRAZOLE MAGNESIUM
     Indication: DYSPEPSIA
  10. TRAMADOL. [Concomitant]
     Active Substance: TRAMADOL
     Indication: PAIN
  11. ZALSARTAN HCTZ [Suspect]
     Active Substance: UNSPECIFIED INGREDIENT
     Indication: BLOOD PRESSURE ABNORMAL
     Dosage: 160MG/25MG
     Route: 048
     Dates: start: 1998
  12. THEOPHYLLINE [Suspect]
     Active Substance: THEOPHYLLINE ANHYDROUS
     Indication: ASTHMA
     Dosage: 600 MILLIGRAM DAILY;
     Route: 048
  13. LYRICA [Suspect]
     Active Substance: PREGABALIN
     Indication: NERVE INJURY
     Dosage: 150 MILLIGRAM DAILY;
     Route: 048
     Dates: start: 2013

REACTIONS (30)
  - Blood pressure abnormal [Recovered/Resolved]
  - Electrocardiogram Q wave abnormal [Unknown]
  - Pyrexia [Recovered/Resolved]
  - Device failure [None]
  - Intentional product use issue [None]
  - Intervertebral disc protrusion [None]
  - Weight increased [Unknown]
  - Blood magnesium decreased [None]
  - Mental impairment [None]
  - Tachycardia [Recovered/Resolved]
  - Feeling abnormal [Recovered/Resolved]
  - Suicidal ideation [None]
  - Depression [None]
  - Chills [Recovered/Resolved]
  - Sinus disorder [Unknown]
  - Renal disorder [Recovering/Resolving]
  - Musculoskeletal stiffness [Unknown]
  - Fall [None]
  - Toxicity to various agents [Recovered/Resolved]
  - Blood potassium decreased [None]
  - Drug withdrawal syndrome [None]
  - Viral infection [Recovered/Resolved]
  - Hypoxia [Unknown]
  - Swelling face [Unknown]
  - Feeling hot [Unknown]
  - Drug hypersensitivity [None]
  - Dehydration [Recovered/Resolved]
  - Atrial fibrillation [Unknown]
  - Fibrin D dimer increased [None]
  - Drug abuse [None]

NARRATIVE: CASE EVENT DATE: 2011
